FAERS Safety Report 25023931 (Version 4)
Quarter: 2025Q4

REPORT INFORMATION
  Report Type: Spontaneous
  Country: JP (occurrence: JP)
  Receive Date: 20250228
  Receipt Date: 20251118
  Transmission Date: 20260117
  Serious: Yes (Hospitalization, Other)
  Sender: GENMAB
  Company Number: JP-GENMAB-2024-03210

PATIENT
  Age: 80 Year
  Sex: Female

DRUGS (10)
  1. EPKINLY [Suspect]
     Active Substance: EPCORITAMAB-BYSP
     Indication: Diffuse large B-cell lymphoma refractory
     Dosage: 0.16 MILLIGRAM, SINGLE
     Route: 058
     Dates: start: 20240814, end: 20240814
  2. EPKINLY [Suspect]
     Active Substance: EPCORITAMAB-BYSP
     Dosage: 0.8 MILLIGRAM, SINGLE
     Route: 058
     Dates: start: 20240821, end: 20240821
  3. EPKINLY [Suspect]
     Active Substance: EPCORITAMAB-BYSP
     Dosage: 48 MILLIGRAM
     Route: 058
     Dates: start: 20240828
  4. CORTICOTROPIN [Suspect]
     Active Substance: CORTICOTROPIN
     Indication: COVID-19
     Dosage: UNK
     Dates: start: 2024
  5. DEXAMETHASONE [Concomitant]
     Active Substance: DEXAMETHASONE
     Indication: Prophylaxis
     Dosage: 13.2 MILLIGRAM, ON DAY 1, DAY 2 AND DAY 4 OF ADMINISTRATION OF EPKINLY, AT THE FIRST ADMINISTRATION
     Dates: start: 20240814, end: 20240817
  6. DEXAMETHASONE [Concomitant]
     Active Substance: DEXAMETHASONE
     Dosage: 13.2 MILLIGRAM, ON DAY 1, DAY 2, DAY 3 AND DAY 4 OF ADMINISTRATION OF EPKINLY, FROM THE SECOND TO TH
     Dates: start: 20240821, end: 20240907
  7. DEXCHLORPHENIRAMINE MALEATE [Concomitant]
     Active Substance: DEXCHLORPHENIRAMINE MALEATE
     Indication: Prophylaxis
     Dosage: 6 MILLIGRAM, ON DAY 1 OF ADMINISTRATION OF EPKINLY
     Dates: start: 20240814, end: 20240904
  8. CALONAL [Concomitant]
     Active Substance: ACETAMINOPHEN
     Indication: Prophylaxis
     Dosage: 1000 MILLIGRAM, ON DAY 1 OF ADMINISTRATION OF EPKINLY
     Dates: start: 20240814, end: 20240904
  9. SULFAMETHOXAZOLE\TRIMETHOPRIM [Concomitant]
     Active Substance: SULFAMETHOXAZOLE\TRIMETHOPRIM
     Indication: Infection prophylaxis
     Dosage: UNK
     Dates: start: 202406
  10. ACYCLOVIR [Concomitant]
     Active Substance: ACYCLOVIR
     Indication: Infection prophylaxis
     Dosage: UNK
     Dates: start: 202406

REACTIONS (9)
  - Hypogammaglobulinaemia [Recovering/Resolving]
  - Cytokine release syndrome [Recovered/Resolved]
  - COVID-19 pneumonia [Recovered/Resolved]
  - Cytokine release syndrome [Recovered/Resolved]
  - Cytokine release syndrome [Recovered/Resolved]
  - Tumour flare [Unknown]
  - Cytomegalovirus test positive [Recovered/Resolved]
  - Neutrophil count decreased [Unknown]
  - Therapeutic product effect incomplete [Unknown]

NARRATIVE: CASE EVENT DATE: 20240101
